FAERS Safety Report 15891885 (Version 3)
Quarter: 2019Q4

REPORT INFORMATION
  Report Type: Spontaneous
  Country: IT (occurrence: IT)
  Receive Date: 20190130
  Receipt Date: 20191118
  Transmission Date: 20200122
  Serious: Yes (Other)
  Sender: FDA-Public Use
  Company Number: IT-SHIRE-IT201850423

PATIENT

DRUGS (6)
  1. COAGULATION FACTOR VIII(PLASMA DERIVED) [Suspect]
     Active Substance: ANTIHEMOPHILIC FACTOR HUMAN
     Indication: FACTOR VIII DEFICIENCY
     Dosage: UNK
     Route: 065
  2. MOROCTOCOG ALFA [Concomitant]
     Active Substance: ANTIHEMOPHILIC FACTOR, HUMAN RECOMBINANT RESIDUES 743-1636 DELETED
     Indication: IMMUNE TOLERANCE INDUCTION
  3. HUMAN COAGULATION FACTOR VIII; HUMAN VON WILLEBRAND FACTOR [Suspect]
     Active Substance: HUMAN COAGULATION FACTOR VIII/VON WILLEBRAND FACTOR COMPLEX
     Indication: HAEMOPHILIA A WITH ANTI FACTOR VIII
     Dosage: 200 INTERNATIONAL UNIT/KILOGRAM, 1X/DAY:QD
     Route: 065
  4. COAGULATION FACTOR VIII(PLASMA DERIVED) [Suspect]
     Active Substance: ANTIHEMOPHILIC FACTOR HUMAN
     Indication: IMMUNE TOLERANCE INDUCTION
  5. HUMAN COAGULATION FACTOR VIII; HUMAN VON WILLEBRAND FACTOR [Suspect]
     Active Substance: HUMAN COAGULATION FACTOR VIII/VON WILLEBRAND FACTOR COMPLEX
     Indication: IMMUNE TOLERANCE INDUCTION
  6. MOROCTOCOG ALFA [Concomitant]
     Active Substance: ANTIHEMOPHILIC FACTOR, HUMAN RECOMBINANT RESIDUES 743-1636 DELETED
     Indication: FACTOR VIII DEFICIENCY

REACTIONS (2)
  - Drug ineffective [Unknown]
  - Factor VIII inhibition [Unknown]
